FAERS Safety Report 9437060 (Version 1)
Quarter: 2013Q3

REPORT INFORMATION
  Report Type: Spontaneous
  Country: GB (occurrence: GB)
  Receive Date: 20130802
  Receipt Date: 20130802
  Transmission Date: 20140515
  Serious: Yes (Other)
  Sender: FDA-Public Use
  Company Number: GB-PFIZER INC-2013222014

PATIENT
  Age: 47 Year
  Sex: Female
  Weight: 125 kg

DRUGS (2)
  1. RAMIPRIL [Suspect]
     Dosage: UNK
     Route: 065
  2. NORIDAY [Concomitant]
     Dosage: UNK
     Dates: start: 20120404

REACTIONS (2)
  - Angioedema [Recovering/Resolving]
  - Muscle spasms [Recovered/Resolved]
